FAERS Safety Report 8884003 (Version 2)
Quarter: 2013Q1

REPORT INFORMATION
  Report Type: Spontaneous
  Country: US (occurrence: US)
  Receive Date: 20121102
  Receipt Date: 20130308
  Transmission Date: 20140127
  Serious: No
  Sender: FDA-Public Use
  Company Number: US-ASTRAZENECA-2012SE26375

PATIENT
  Age: 56 Year
  Sex: Female

DRUGS (3)
  1. CRESTOR [Suspect]
     Dosage: GENERIC
     Route: 048
  2. CRESTOR [Suspect]
     Route: 048
  3. LOVASTATIN [Concomitant]

REACTIONS (3)
  - Adverse drug reaction [Unknown]
  - Intentional drug misuse [Unknown]
  - Drug dose omission [Unknown]
